FAERS Safety Report 7052351-2 (Version None)
Quarter: 2010Q4

REPORT INFORMATION
  Report Type: 
  Country: None (occurrence: None)
  Receive Date: 20101019
  Receipt Date: 20101004
  Transmission Date: 20110411
  Serious: Yes (Hospitalization)
  Sender: FDA-Public Use
  Company Number: BR-MEDIMMUNE-MEDI-0011596

PATIENT
  Sex: Male
  Weight: 9.15 kg

DRUGS (4)
  1. SYNAGIS [Suspect]
     Indication: BRONCHOPULMONARY DYSPLASIA
     Route: 030
     Dates: start: 20100430
  2. SYNAGIS [Suspect]
  3. OMEPRAZOLE [Concomitant]
     Route: 048
     Dates: start: 20100917
  4. DOMPERIDONE [Concomitant]
     Route: 048
     Dates: start: 20100107

REACTIONS (5)
  - BRONCHIOLITIS [None]
  - PNEUMONIA [None]
  - PYREXIA [None]
  - RESPIRATORY SYNCYTIAL VIRUS INFECTION [None]
  - RESPIRATORY TRACT CONGESTION [None]
